FAERS Safety Report 9192538 (Version 1)
Quarter: 2013Q1

REPORT INFORMATION
  Report Type: Spontaneous
  Country: US (occurrence: None)
  Receive Date: 20120703
  Receipt Date: 20120703
  Transmission Date: 20140127
  Serious: Yes (Other)
  Sender: FDA-Public Use
  Company Number: PHEH2012US009659

PATIENT
  Age: 52 Year
  Sex: Female

DRUGS (4)
  1. GILENYA (FTY)CAPSULE, 0.5 MG [Suspect]
     Indication: MULTIPLE SCLEROSIS
     Route: 048
     Dates: start: 20110520, end: 20120210
  2. FAMPRIDINE (FAMPRIDINE) [Concomitant]
  3. PROVIGIL (MODAFINIL) [Concomitant]
  4. OXYBUTYNIN (OXYBUTYNIN) [Concomitant]

REACTIONS (2)
  - White blood cell count decreased [None]
  - Anaemia [None]
